FAERS Safety Report 9357870 (Version 1)
Quarter: 2013Q2

REPORT INFORMATION
  Report Type: Spontaneous
  Country: US (occurrence: US)
  Receive Date: 20130620
  Receipt Date: 20130620
  Transmission Date: 20140414
  Serious: No
  Sender: FDA-Public Use
  Company Number: US-GALDERMA-US-GDP-12415391

PATIENT
  Age: 18 Year
  Sex: Male
  Weight: 73 kg

DRUGS (2)
  1. DIFFERIN [Suspect]
     Indication: ACNE
     Route: 061
     Dates: start: 201202
  2. ACNE FREE [Concomitant]
     Indication: THERAPEUTIC SKIN CARE TOPICAL
     Route: 061

REACTIONS (1)
  - Drug ineffective [Not Recovered/Not Resolved]
